FAERS Safety Report 7594660-4 (Version None)
Quarter: 2011Q2

REPORT INFORMATION
  Report Type: 
  Country: None (occurrence: None)
  Receive Date: 20110609
  Receipt Date: 20110510
  Transmission Date: 20111010
  Serious: No
  Sender: FDA-Public Use
  Company Number: TH-2011-00127

PATIENT
  Age: 51 Year
  Sex: Female

DRUGS (2)
  1. PREDNISONE [Concomitant]
  2. EGRIFTA [Suspect]
     Indication: LIPODYSTROPHY ACQUIRED
     Dosage: 1 IN 1 D, SUBCUTANEOUS
     Route: 058

REACTIONS (4)
  - INJECTION SITE PAIN [None]
  - INSOMNIA [None]
  - INJECTION SITE ERYTHEMA [None]
  - INJECTION SITE HAEMATOMA [None]
